FAERS Safety Report 18347862 (Version 1)
Quarter: 2020Q4

REPORT INFORMATION
  Report Type: Spontaneous
  Country: TR (occurrence: TR)
  Receive Date: 20201006
  Receipt Date: 20201006
  Transmission Date: 20210114
  Serious: Yes (Other)
  Sender: FDA-Public Use
  Company Number: TR-LUPIN PHARMACEUTICALS INC.-2020-06709

PATIENT
  Sex: Female
  Weight: 2.45 kg

DRUGS (4)
  1. METHYLPREDNISOLONE. [Suspect]
     Active Substance: METHYLPREDNISOLONE
     Indication: IMMUNOSUPPRESSANT DRUG THERAPY
     Dosage: 5 MILLIGRAM, QD
     Route: 064
  2. PROGRAF [Suspect]
     Active Substance: TACROLIMUS
     Indication: IMMUNOSUPPRESSANT DRUG THERAPY
     Dosage: 3 MILLIGRAM, QD
     Route: 064
  3. AZATHIOPRINE [AZATHIOPRINE SODIUM] [Suspect]
     Active Substance: AZATHIOPRINE SODIUM
     Indication: IMMUNOSUPPRESSANT DRUG THERAPY
     Dosage: UNK
     Route: 064
  4. PROGRAF [Suspect]
     Active Substance: TACROLIMUS
     Dosage: AVERAGE DOSE OF 4.57, 9.53 AND 9 MG/DAY
     Route: 064

REACTIONS (5)
  - Toxicity to various agents [Recovered/Resolved]
  - Foetal exposure during pregnancy [Unknown]
  - Nephropathy toxic [Recovered/Resolved]
  - Premature baby [Unknown]
  - Low birth weight baby [Unknown]
